FAERS Safety Report 4692433-3 (Version None)
Quarter: 2005Q2

REPORT INFORMATION
  Report Type: 
  Country: None (occurrence: None)
  Receive Date: 20050616
  Receipt Date: 20050527
  Transmission Date: 20051028
  Serious: Yes (Life-Threatening, Hospitalization)
  Sender: FDA-Public Use
  Company Number: DSA_26548_2005

PATIENT
  Age: 93 Year
  Sex: Female

DRUGS (6)
  1. DILTIAZEM HYDROCHLORIDE [Suspect]
     Indication: HYPERTENSION
     Dosage: 300 MG Q DAY PO
     Route: 048
     Dates: end: 20050328
  2. CORVASAL [Concomitant]
  3. PLAVIX [Concomitant]
  4. NITRODERM [Concomitant]
  5. ZYLORIC [Concomitant]
  6. LASIX [Concomitant]

REACTIONS (7)
  - ASTHENIA [None]
  - BRADYCARDIA [None]
  - DYSPNOEA [None]
  - FALL [None]
  - HYPERKALAEMIA [None]
  - PARALYSIS [None]
  - SINUS DISORDER [None]
